FAERS Safety Report 4988695-5 (Version None)
Quarter: 2006Q2

REPORT INFORMATION
  Report Type: 
  Country: None (occurrence: None)
  Receive Date: 20060502
  Receipt Date: 20051028
  Transmission Date: 20061013
  Serious: Yes (Hospitalization)
  Sender: FDA-Public Use
  Company Number: AT-ABBOTT-05P-009-0315759-00

PATIENT
  Sex: Female
  Weight: 40 kg

DRUGS (10)
  1. HUMIRA [Suspect]
     Indication: RHEUMATOID ARTHRITIS
     Route: 058
     Dates: start: 20050501, end: 20050901
  2. PREDNISOLONE [Concomitant]
     Indication: DRUG USE FOR UNKNOWN INDICATION
     Route: 048
  3. PANTOPRAZOLE [Concomitant]
     Indication: ULCER
  4. ALENDRONATE SODIUM [Concomitant]
     Indication: OSTEOPOROSIS
  5. AMITRIPTYLINE HYDROCHLORIDE [Concomitant]
     Indication: DEPRESSION
  6. BROTIZOLAM [Concomitant]
     Indication: SEDATIVE THERAPY
  7. MADOPAR [Concomitant]
     Indication: PARKINSON'S DISEASE
  8. ESCITALOPRAM OXALATE [Concomitant]
     Indication: DEPRESSION
  9. METHOTREXATE [Concomitant]
     Indication: RHEUMATOID ARTHRITIS
     Route: 048
     Dates: start: 20040101
  10. METHOTREXATE [Concomitant]
     Route: 048
     Dates: start: 20050501

REACTIONS (1)
  - PEMPHIGUS [None]
